FAERS Safety Report 5389811-6 (Version None)
Quarter: 2007Q3

REPORT INFORMATION
  Report Type: 
  Country: None (occurrence: None)
  Receive Date: 20070718
  Receipt Date: 20070710
  Transmission Date: 20080115
  Serious: Yes (Other)
  Sender: FDA-Public Use
  Company Number: PHBS2007JP04348

PATIENT
  Age: 11 Year
  Sex: Male
  Weight: 27 kg

DRUGS (9)
  1. NEORAL [Suspect]
     Indication: RENAL TRANSPLANT
  2. NEORAL [Suspect]
     Dosage: 350 MG/D
     Route: 048
     Dates: start: 20000822
  3. SOLU-MEDROL [Concomitant]
     Indication: RENAL TRANSPLANT
     Dosage: 500 MG/D
     Route: 042
     Dates: start: 20000816, end: 20000822
  4. MIZORIBINE [Concomitant]
     Indication: RENAL TRANSPLANT
     Dosage: 100 MG/D
     Route: 048
     Dates: start: 20000815
  5. SANDIMMUNE [Suspect]
     Indication: RENAL TRANSPLANT
     Dosage: UNK, UNK
     Route: 065
     Dates: end: 20000821
  6. VALPROATE SODIUM [Concomitant]
     Dosage: 200 MG./D
     Route: 048
     Dates: end: 20001114
  7. AMLODIPINE [Concomitant]
     Dosage: 2.5 MG/D
     Route: 048
     Dates: end: 20001114
  8. KALIMATE [Concomitant]
     Dosage: 3 G/D
     Route: 048
     Dates: end: 20000815
  9. MEDROL [Concomitant]
     Indication: RENAL TRANSPLANT
     Dosage: 32 MG/D
     Route: 048
     Dates: start: 20000824, end: 20040319

REACTIONS (2)
  - LEUKOCYTOSIS [None]
  - NEUTROPHILIA [None]
